FAERS Safety Report 8596289 (Version 3)
Quarter: 2014Q1

REPORT INFORMATION
  Report Type: Spontaneous
  Country: US (occurrence: US)
  Receive Date: 20120605
  Receipt Date: 20140128
  Transmission Date: 20141002
  Serious: Yes (Disabling, Other)
  Sender: FDA-Public Use
  Company Number: US-ASTRAZENECA-2012SE34889

PATIENT
  Age: 60 Year
  Sex: Female

DRUGS (20)
  1. NEXIUM [Suspect]
     Indication: GASTROOESOPHAGEAL REFLUX DISEASE
     Route: 048
     Dates: start: 20050329
  2. NEXIUM [Suspect]
     Indication: GASTROOESOPHAGEAL REFLUX DISEASE
     Route: 048
     Dates: start: 200511
  3. NEXIUM [Suspect]
     Indication: GASTROOESOPHAGEAL REFLUX DISEASE
     Route: 048
     Dates: start: 20090702
  4. NEXIUM [Suspect]
     Indication: GASTROOESOPHAGEAL REFLUX DISEASE
     Route: 048
     Dates: start: 20070228
  5. NEXIUM [Suspect]
     Indication: GASTROOESOPHAGEAL REFLUX DISEASE
     Route: 048
     Dates: start: 20100804
  6. NEXIUM [Suspect]
     Indication: GASTROOESOPHAGEAL REFLUX DISEASE
     Route: 048
     Dates: start: 20110818
  7. NEXIUM [Suspect]
     Indication: GASTROOESOPHAGEAL REFLUX DISEASE
     Route: 048
     Dates: start: 20121008
  8. NEXIUM [Suspect]
     Indication: GASTROOESOPHAGEAL REFLUX DISEASE
     Route: 048
     Dates: start: 20090923
  9. PEPCID [Concomitant]
     Dates: start: 20050316
  10. ALKA-SELTZER [Concomitant]
  11. TUMS [Concomitant]
  12. PROTONIX [Concomitant]
     Dosage: 40
     Dates: start: 20050316
  13. PRILOSEC [Concomitant]
     Dates: start: 20060816
  14. PRILOSEC [Concomitant]
     Dates: start: 20060515
  15. PRILOSEC [Concomitant]
     Dates: start: 20061116
  16. PRILOSEC [Concomitant]
     Dates: start: 20070426
  17. PRILOSEC [Concomitant]
     Dates: start: 20080214
  18. PRILOSEC [Concomitant]
     Dosage: GENERIC OF PRILOSEC- 20
     Dates: start: 20130131
  19. TRAZADONE [Concomitant]
     Dates: start: 20080720
  20. HYDROCODONE BITARTRATE AND ACETAMINOPHEN [Concomitant]
     Dosage: 7.5/500MG
     Dates: start: 20100106

REACTIONS (10)
  - Cerebrovascular accident [Unknown]
  - Disability [Unknown]
  - Osteoporosis [Unknown]
  - Foot fracture [Unknown]
  - Ligament rupture [Unknown]
  - Tendon rupture [Unknown]
  - Bone pain [Unknown]
  - Arthritis [Unknown]
  - Carpal tunnel syndrome [Unknown]
  - Osteoarthritis [Unknown]
